FAERS Safety Report 10621836 (Version 1)
Quarter: 2014Q4

REPORT INFORMATION
  Report Type: Spontaneous
  Country: US (occurrence: US)
  Receive Date: 20141203
  Receipt Date: 20141203
  Transmission Date: 20150529
  Serious: No
  Sender: FDA-Public Use
  Company Number: US-009507513-1412USA001356

PATIENT
  Sex: Male

DRUGS (1)
  1. ASMANEX [Suspect]
     Active Substance: MOMETASONE FUROATE
     Dosage: 220 MICROGRAM/ ONE PUFF EVERY EVENING
     Route: 055
     Dates: start: 20141110

REACTIONS (3)
  - No adverse event [Unknown]
  - Drug dose omission [Unknown]
  - Product quality issue [Unknown]
